FAERS Safety Report 9226664 (Version 1)
Quarter: 2013Q2

REPORT INFORMATION
  Report Type: Spontaneous
  Country: US (occurrence: US)
  Receive Date: 20130412
  Receipt Date: 20130412
  Transmission Date: 20140414
  Serious: No
  Sender: FDA-Public Use
  Company Number: US-PFIZER INC-2013112283

PATIENT
  Age: 49 Year
  Sex: Female
  Weight: 65.76 kg

DRUGS (1)
  1. LEVOTHYROXINE SODIUM [Suspect]
     Indication: HYPOTHYROIDISM
     Dosage: 0.075 MG, 1X/DAY
     Route: 048
     Dates: start: 2012, end: 2012

REACTIONS (2)
  - Depression [Unknown]
  - Weight increased [Unknown]
